FAERS Safety Report 25234432 (Version 1)
Quarter: 2025Q2

REPORT INFORMATION
  Report Type: Spontaneous
  Country: HU (occurrence: HU)
  Receive Date: 20250424
  Receipt Date: 20250424
  Transmission Date: 20250716
  Serious: Yes (Other)
  Sender: ROCHE
  Company Number: HU-ROCHE-10000259328

PATIENT

DRUGS (1)
  1. CELLCEPT [Suspect]
     Active Substance: MYCOPHENOLATE MOFETIL
     Indication: Product used for unknown indication
     Route: 065

REACTIONS (10)
  - Irritability [Unknown]
  - Anxiety [Unknown]
  - Feeling abnormal [Unknown]
  - Disturbance in attention [Unknown]
  - Confusional state [Unknown]
  - Memory impairment [Unknown]
  - Alopecia [Unknown]
  - Oedema [Unknown]
  - Fatigue [Unknown]
  - Aphasia [Unknown]
